FAERS Safety Report 11309422 (Version 1)
Quarter: 2015Q3

REPORT INFORMATION
  Report Type: Spontaneous
  Country: CA (occurrence: CA)
  Receive Date: 20150724
  Receipt Date: 20150724
  Transmission Date: 20151125
  Serious: Yes (Disabling)
  Sender: FDA-Public Use
  Company Number: CA-TEVA-580942ACC

PATIENT
  Age: 64 Year
  Sex: Female
  Weight: 73 kg

DRUGS (7)
  1. LITHIUM. [Suspect]
     Active Substance: LITHIUM
     Indication: MAJOR DEPRESSION
     Dosage: 900 MILLIGRAM DAILY;
     Route: 048
  2. SERTRALINE [Suspect]
     Active Substance: SERTRALINE HYDROCHLORIDE
     Indication: MAJOR DEPRESSION
     Dosage: 200 MILLIGRAM DAILY;
     Route: 048
  3. SERTRALINE [Suspect]
     Active Substance: SERTRALINE HYDROCHLORIDE
     Dosage: 150 MILLIGRAM DAILY;
     Route: 048
  4. OLANZAPINE. [Concomitant]
     Active Substance: OLANZAPINE
     Route: 065
  5. IRBESARTAN. [Concomitant]
     Active Substance: IRBESARTAN
     Route: 065
  6. HYDROCHLOROTHIAZIDE. [Concomitant]
     Active Substance: HYDROCHLOROTHIAZIDE
     Route: 065
  7. TEMAZEPAM. [Concomitant]
     Active Substance: TEMAZEPAM
     Route: 065

REACTIONS (3)
  - Creatinine renal clearance decreased [Recovered/Resolved]
  - Aphasia [Recovered/Resolved]
  - Serotonin syndrome [Recovered/Resolved]
